FAERS Safety Report 25001255 (Version 1)
Quarter: 2025Q1

REPORT INFORMATION
  Report Type: Report from Study
  Country: IN (occurrence: IN)
  Receive Date: 20250223
  Receipt Date: 20250223
  Transmission Date: 20250409
  Serious: Yes (Hospitalization)
  Sender: ROCHE
  Company Number: IN-ROCHE-10000040020

PATIENT
  Age: 5 Year
  Sex: Female
  Weight: 12.6 kg

DRUGS (1)
  1. EVRYSDI [Suspect]
     Active Substance: RISDIPLAM
     Indication: Spinal muscular atrophy
     Dosage: SOLUTION
     Route: 048

REACTIONS (5)
  - Pneumonia [Unknown]
  - Weight increased [Unknown]
  - Viral infection [Unknown]
  - Cough [Unknown]
  - Illness [Unknown]
